FAERS Safety Report 9537240 (Version 1)
Quarter: 2013Q3

REPORT INFORMATION
  Report Type: Spontaneous
  Country: US (occurrence: None)
  Receive Date: 20130918
  Receipt Date: 20130918
  Transmission Date: 20140515
  Serious: Yes (Hospitalization)
  Sender: FDA-Public Use
  Company Number: None

PATIENT
  Age: 57 Year
  Sex: Female
  Weight: 54.43 kg

DRUGS (1)
  1. CIPRO [Suspect]
     Indication: DIVERTICULITIS
     Dosage: CIPRO TWICE DAILY TAKEN BY MOUTH
     Route: 048
     Dates: start: 20130908, end: 20130915

REACTIONS (9)
  - Headache [None]
  - Pain [None]
  - Confusional state [None]
  - Dizziness [None]
  - Nausea [None]
  - Decreased appetite [None]
  - Insomnia [None]
  - Palpitations [None]
  - Heart rate increased [None]
